FAERS Safety Report 10524574 (Version 2)
Quarter: 2014Q4

REPORT INFORMATION
  Report Type: Spontaneous
  Country: DE (occurrence: DE)
  Receive Date: 20141017
  Receipt Date: 20141017
  Transmission Date: 20150528
  Serious: Yes (Congenital Anomaly, Other)
  Sender: FDA-Public Use
  Company Number: DE-GALDERMA-DE14000909

PATIENT
  Age: 43 Year
  Sex: Male
  Weight: 73 kg

DRUGS (4)
  1. SALOFALK GRANU-STIX [Concomitant]
     Indication: COLITIS ULCERATIVE
     Route: 054
     Dates: start: 2012
  2. ORAYCEA [Suspect]
     Active Substance: DOXYCYCLINE
     Indication: ROSACEA
     Route: 048
     Dates: start: 20140205, end: 20140207
  3. SALOFALK [Concomitant]
     Active Substance: MESALAMINE
     Indication: COLITIS ULCERATIVE
     Route: 054
     Dates: start: 2012
  4. SALOFALK [Concomitant]
     Active Substance: MESALAMINE
     Route: 054
     Dates: start: 2012

REACTIONS (6)
  - Drug eruption [Recovered/Resolved]
  - Balanoposthitis [Recovering/Resolving]
  - Autoimmune pancreatitis [Recovering/Resolving]
  - Erythema [Recovered/Resolved]
  - Skin burning sensation [Recovered/Resolved]
  - Oral mucosal blistering [Recovered/Resolved]

NARRATIVE: CASE EVENT DATE: 20140207
